FAERS Safety Report 8064314-9 (Version None)
Quarter: 2012Q1

REPORT INFORMATION
  Report Type: 
  Country: None (occurrence: None)
  Receive Date: 20120123
  Receipt Date: 20120110
  Transmission Date: 20120608
  Serious: Yes (Hospitalization)
  Sender: FDA-Public Use
  Company Number: IE-MEDIMMUNE-MEDI-0014446

PATIENT
  Sex: Female
  Weight: 9.85 kg

DRUGS (7)
  1. CHLORAL HYDRATE [Concomitant]
  2. OMEPRAZOLE SODIUM [Concomitant]
  3. VALPROATE SODIUM [Concomitant]
  4. CLONAZEPAM [Concomitant]
  5. LACTULOSE [Concomitant]
  6. RANITIDINE HCL [Concomitant]
  7. SYNAGIS [Suspect]
     Route: 030
     Dates: start: 20111029, end: 20111029

REACTIONS (5)
  - FEELING COLD [None]
  - RESPIRATORY TRACT CONGESTION [None]
  - SOMNOLENCE [None]
  - PNEUMONIA [None]
  - PYREXIA [None]
